FAERS Safety Report 7740037-8 (Version None)
Quarter: 2011Q3

REPORT INFORMATION
  Report Type: 
  Country: None (occurrence: None)
  Receive Date: 20110909
  Receipt Date: 20110907
  Transmission Date: 20111222
  Serious: Yes (Other)
  Sender: FDA-Public Use
  Company Number: US-PFIZER INC-2011210903

PATIENT

DRUGS (2)
  1. PHENYTOIN SODIUM [Suspect]
     Dosage: UNK
  2. DILANTIN [Suspect]
     Dosage: UNK

REACTIONS (1)
  - CONVULSION [None]
